FAERS Safety Report 23686300 (Version 1)
Quarter: 2024Q1

REPORT INFORMATION
  Report Type: Spontaneous
  Country: FR (occurrence: FR)
  Receive Date: 20240329
  Receipt Date: 20240329
  Transmission Date: 20240410
  Serious: Yes (Other)
  Sender: FDA-Public Use
  Company Number: FR-BAUSCHBL-2024BNL003773

PATIENT
  Sex: Female

DRUGS (1)
  1. LUMIFY [Suspect]
     Active Substance: BRIMONIDINE TARTRATE
     Indication: Erythema
     Dosage: 1 TO 2 DROPS PER DAY FOR 3-4 DAYS
     Route: 065

REACTIONS (1)
  - Aortic dissection [Unknown]
